FAERS Safety Report 8155939-0 (Version None)
Quarter: 2012Q1

REPORT INFORMATION
  Report Type: 
  Country: None (occurrence: None)
  Receive Date: 20120103
  Receipt Date: 20110927
  Transmission Date: 20120608
  Serious: No
  Sender: FDA-Public Use
  Company Number: AE-2011-000894

PATIENT
  Age: 58 Year
  Sex: Male
  Weight: 99.7913 kg

DRUGS (14)
  1. LANTUS [Concomitant]
  2. FISH OIL (FISH OIL) [Concomitant]
  3. ASPIRIN [Concomitant]
  4. METOPROLOL TARTRATE [Concomitant]
  5. INCIVEK [Suspect]
     Dosage: 2250 MG (750 MG, 3 IN 1 D)
     Dates: start: 20110810
  6. PEGASYS [Concomitant]
  7. OMEPRAZOLE [Concomitant]
  8. MILK THISTLE (SILYBUM MARIANUM) [Concomitant]
  9. CORTICOSTEROID CREAM (CORTICOSTEROIDS, DERMATOLOGICAL PREPARATIONS) [Concomitant]
  10. GLIMEPIRIDE [Concomitant]
  11. BENADRYL [Concomitant]
  12. MULTIVITAMIN (MULTIVITAMIN ^LAPPE^) [Concomitant]
  13. RIBAVIRIN [Concomitant]
  14. NADOLOL [Concomitant]

REACTIONS (4)
  - BLOOD GLUCOSE INCREASED [None]
  - RASH GENERALISED [None]
  - PYREXIA [None]
  - CELLULITIS ORBITAL [None]
